FAERS Safety Report 15304862 (Version 1)
Quarter: 2018Q3

REPORT INFORMATION
  Report Type: Report from Study
  Country: US (occurrence: US)
  Receive Date: 20180822
  Receipt Date: 20180822
  Transmission Date: 20181010
  Serious: Yes (Other)
  Sender: FDA-Public Use
  Company Number: US-BRISTOL-MYERS SQUIBB COMPANY-BMS-2018-074252

PATIENT
  Age: 82 Year
  Sex: Male

DRUGS (2)
  1. ABATACEPT [Suspect]
     Active Substance: ABATACEPT
     Indication: RHEUMATOID ARTHRITIS
     Dosage: 750 MG, Q4WK
     Route: 042
  2. ARAVA [Concomitant]
     Active Substance: LEFLUNOMIDE
     Indication: PRODUCT USED FOR UNKNOWN INDICATION
     Route: 065

REACTIONS (6)
  - Osteopenia [Unknown]
  - Decreased appetite [Unknown]
  - Skin cancer [Recovered/Resolved]
  - Nausea [Unknown]
  - Pharyngitis [Unknown]
  - Constipation [Unknown]

NARRATIVE: CASE EVENT DATE: 201209
